FAERS Safety Report 20485798 (Version 2)
Quarter: 2022Q1

REPORT INFORMATION
  Report Type: Spontaneous
  Country: RO (occurrence: RO)
  Receive Date: 20220217
  Receipt Date: 20220324
  Transmission Date: 20220423
  Serious: Yes (Death, Hospitalization, Other)
  Sender: FDA-Public Use
  Company Number: RO-GILEAD-2022-0569985

PATIENT
  Age: 31 Year
  Sex: Female

DRUGS (6)
  1. VEKLURY [Suspect]
     Active Substance: REMDESIVIR
     Indication: COVID-19
     Dosage: UNK
     Route: 065
  2. DEXAMETHASONE [Concomitant]
     Active Substance: DEXAMETHASONE
  3. ENOXAPARIN [Concomitant]
     Active Substance: ENOXAPARIN
  4. ASPIRIN [Concomitant]
     Active Substance: ASPIRIN
  5. TOCILIZUMAB [Concomitant]
     Active Substance: TOCILIZUMAB
  6. LOPINAVIR\RITONAVIR [Concomitant]
     Active Substance: LOPINAVIR\RITONAVIR

REACTIONS (2)
  - Foetal death [Fatal]
  - Maternal exposure during pregnancy [Recovered/Resolved]
